FAERS Safety Report 10055902 (Version 4)
Quarter: 2014Q2

REPORT INFORMATION
  Report Type: Spontaneous
  Country: US (occurrence: US)
  Receive Date: 20140403
  Receipt Date: 20140430
  Transmission Date: 20141212
  Serious: Yes (Hospitalization)
  Sender: FDA-Public Use
  Company Number: US-JNJFOC-20140318215

PATIENT
  Age: 80 Year
  Sex: Female
  Weight: 81.19 kg

DRUGS (2)
  1. XARELTO [Suspect]
     Indication: ATRIAL FIBRILLATION
     Route: 048
     Dates: start: 20140217, end: 20140320
  2. XARELTO [Suspect]
     Indication: CEREBROVASCULAR ACCIDENT PROPHYLAXIS
     Route: 048
     Dates: start: 20140217, end: 20140320

REACTIONS (4)
  - Cerebral haemorrhage [Unknown]
  - Dysphagia [Not Recovered/Not Resolved]
  - Hemiplegia [Not Recovered/Not Resolved]
  - Drug prescribing error [Unknown]
